FAERS Safety Report 20643977 (Version 2)
Quarter: 2022Q2

REPORT INFORMATION
  Report Type: Spontaneous
  Country: IT (occurrence: IT)
  Receive Date: 20220328
  Receipt Date: 20220418
  Transmission Date: 20220720
  Serious: Yes (Other)
  Sender: FDA-Public Use
  Company Number: IT-009507513-2203ITA007654

PATIENT
  Age: 67 Year
  Sex: Female

DRUGS (2)
  1. PEMBROLIZUMAB [Suspect]
     Active Substance: PEMBROLIZUMAB
     Indication: Malignant melanoma
     Dosage: 200 MILLIGRAM, Q3W
     Dates: start: 202002, end: 202102
  2. PEMBROLIZUMAB [Suspect]
     Active Substance: PEMBROLIZUMAB
     Dosage: 400 MILLIGRAM, EVERY 6 WEEKS
     Dates: start: 202112

REACTIONS (9)
  - Melanoma recurrent [Recovering/Resolving]
  - Thyrotoxic crisis [Recovered/Resolved]
  - Hypothyroidism [Unknown]
  - Sinus tachycardia [Recovered/Resolved]
  - Blood thyroid stimulating hormone abnormal [Recovered/Resolved]
  - Pulmonary mass [Recovering/Resolving]
  - Hepatic mass [Recovering/Resolving]
  - Tri-iodothyronine free abnormal [Recovered/Resolved]
  - Thyroxine free abnormal [Recovered/Resolved]

NARRATIVE: CASE EVENT DATE: 20200101
